FAERS Safety Report 9700845 (Version 2)
Quarter: 2013Q4

REPORT INFORMATION
  Report Type: Spontaneous
  Country: US (occurrence: US)
  Receive Date: 20131121
  Receipt Date: 20131129
  Transmission Date: 20140711
  Serious: Yes (Death)
  Sender: FDA-Public Use
  Company Number: US-ROCHE-1306832

PATIENT
  Age: 71 Year
  Sex: Male
  Weight: 97.61 kg

DRUGS (10)
  1. RITUXAN [Suspect]
     Indication: LYMPHOMA
     Dosage: ALSO RECEIVED RITUXAN ON 20/JUL/2011 AND 27/JUL/2011 AND 03/AUG/2011
     Route: 042
     Dates: start: 20110713, end: 20110808
  2. RITUXAN [Suspect]
     Route: 042
     Dates: start: 20110819, end: 20111212
  3. RITUXAN [Suspect]
     Route: 042
     Dates: start: 20120427
  4. VINCRISTIN [Concomitant]
     Route: 065
     Dates: start: 20110819, end: 20111212
  5. CYCLOPHOSPHAMIDE [Concomitant]
     Route: 065
     Dates: start: 20110819, end: 20111212
  6. DOXORUBICIN [Concomitant]
     Route: 065
     Dates: start: 20110819, end: 20111212
  7. ATENOLOL [Concomitant]
     Indication: HYPERTENSION
  8. OXYCODONE [Concomitant]
     Indication: PAIN
  9. OPANA ER [Concomitant]
     Indication: PAIN
  10. ZOLOFT [Concomitant]
     Indication: DEPRESSION

REACTIONS (1)
  - Hepatitis fulminant [Fatal]
